FAERS Safety Report 7630242-3 (Version None)
Quarter: 2011Q3

REPORT INFORMATION
  Report Type: 
  Country: None (occurrence: None)
  Receive Date: 20110722
  Receipt Date: 20110722
  Transmission Date: 20111222
  Serious: Yes (Other)
  Sender: FDA-Public Use
  Company Number: JP-PFIZER INC-2011162345

PATIENT
  Age: 33 Year
  Sex: Male

DRUGS (1)
  1. ZOLOFT [Suspect]
     Indication: DEPRESSION
     Dosage: 25 MG, 2X/DAY
     Route: 048
     Dates: start: 20110606, end: 20110101

REACTIONS (5)
  - NAUSEA [None]
  - EAR CONGESTION [None]
  - VITREOUS FLOATERS [None]
  - HYPOACUSIS [None]
  - VOMITING [None]
